FAERS Safety Report 19659753 (Version 1)
Quarter: 2021Q3

REPORT INFORMATION
  Report Type: Spontaneous
  Country: CN (occurrence: CN)
  Receive Date: 20210804
  Receipt Date: 20210804
  Transmission Date: 20211014
  Serious: Yes (Other)
  Sender: FDA-Public Use
  Company Number: CN-BAXTER-2021BAX023842

PATIENT
  Age: 13 Year
  Sex: Female
  Weight: 38.5 kg

DRUGS (8)
  1. 0.9% SODIUM CHLORIDE INJECTION [Suspect]
     Active Substance: SODIUM CHLORIDE
     Indication: MEDICATION DILUTION
     Dosage: (4:1) GLUCOSE AND SODIUM CHLORIDE INJECTION 250ML IVGTT ST, DILUENT FOR ENDOXAN
     Route: 041
     Dates: start: 20190625, end: 20190625
  2. 0.9% SODIUM CHLORIDE INJECTION [Suspect]
     Active Substance: SODIUM CHLORIDE
     Dosage: (4:1) GLUCOSE AND SODIUM CHLORIDE INJECTION 250ML Q12H IVGTT, DILUENT FOR CYTARABINE
     Route: 041
     Dates: start: 20190625, end: 20190628
  3. MERCAPTOPURINE. [Suspect]
     Active Substance: MERCAPTOPURINE
     Indication: ACUTE LYMPHOCYTIC LEUKAEMIA
     Route: 048
     Dates: start: 20190625, end: 20190701
  4. 5% GLUCOSE  INJECTION [Suspect]
     Active Substance: DEXTROSE
     Indication: MEDICATION DILUTION
     Dosage: (4:1) GLUCOSE AND SODIUM CHLORIDE INJECTION 250ML IVGTT ST, DILUENT FOR ENDOXAN
     Route: 041
     Dates: start: 20190625, end: 20190625
  5. ENDOXAN [Suspect]
     Active Substance: CYCLOPHOSPHAMIDE
     Indication: ACUTE LYMPHOCYTIC LEUKAEMIA
     Route: 041
     Dates: start: 20190625, end: 20190625
  6. 5% GLUCOSE  INJECTION [Suspect]
     Active Substance: DEXTROSE
     Dosage: (4:1) GLUCOSE AND SODIUM CHLORIDE INJECTION 250ML Q12H IVGTT, DILUENT FOR CYTARABINE
     Route: 041
     Dates: start: 20190625, end: 20190628
  7. CYTOSAR [Suspect]
     Active Substance: CYTARABINE
     Indication: ACUTE LYMPHOCYTIC LEUKAEMIA
     Route: 041
     Dates: start: 20190625, end: 20190628
  8. OBEI [ONDANSETRON HYDROCHLORIDE] [Suspect]
     Active Substance: ONDANSETRON HYDROCHLORIDE
     Indication: PROPHYLAXIS
     Route: 042
     Dates: start: 20190625, end: 20190628

REACTIONS (1)
  - Myelosuppression [Recovering/Resolving]

NARRATIVE: CASE EVENT DATE: 20190708
